FAERS Safety Report 11178143 (Version 1)
Quarter: 2015Q2

REPORT INFORMATION
  Report Type: Spontaneous
  Country: US (occurrence: US)
  Receive Date: 20150610
  Receipt Date: 20150610
  Transmission Date: 20150821
  Serious: Yes (Other)
  Sender: FDA-Public Use
  Company Number: US-TEVA-569605USA

PATIENT
  Sex: Female

DRUGS (3)
  1. TREANDA [Suspect]
     Active Substance: BENDAMUSTINE HYDROCHLORIDE
     Indication: CHRONIC LYMPHOCYTIC LEUKAEMIA
     Route: 065
  2. ALLOPURINOL. [Suspect]
     Active Substance: ALLOPURINOL
     Route: 065
  3. RITUXAN [Suspect]
     Active Substance: RITUXIMAB
     Route: 065

REACTIONS (4)
  - Hepatic failure [Unknown]
  - Flushing [Unknown]
  - Rash [Unknown]
  - Drug reaction with eosinophilia and systemic symptoms [Unknown]
